FAERS Safety Report 5115434-X (Version None)
Quarter: 2006Q3

REPORT INFORMATION
  Report Type: 
  Country: None (occurrence: None)
  Receive Date: 20060922
  Receipt Date: 20060828
  Transmission Date: 20061208
  Serious: Yes (Hospitalization, Other)
  Sender: FDA-Public Use
  Company Number: CHNY2006DK02523

PATIENT
  Sex: Female

DRUGS (1)
  1. SCOPODERM TTS (NCH) [Suspect]
     Indication: PROPHYLAXIS AGAINST MOTION SICKNESS
     Dosage: 1.5 MG, ONCE/SINGLE, TRANSDERMAL
     Route: 062
     Dates: start: 20060701, end: 20060701

REACTIONS (12)
  - ANGLE CLOSURE GLAUCOMA [None]
  - BLINDNESS [None]
  - EYE IRRITATION [None]
  - FEELING ABNORMAL [None]
  - HEADACHE [None]
  - NAUSEA [None]
  - PAIN [None]
  - PUPILS UNEQUAL [None]
  - SOMNOLENCE [None]
  - VISUAL ACUITY REDUCED [None]
  - VISUAL DISTURBANCE [None]
  - VOMITING [None]
